FAERS Safety Report 12923552 (Version 1)
Quarter: 2016Q4

REPORT INFORMATION
  Report Type: Spontaneous
  Country: US (occurrence: US)
  Receive Date: 20161108
  Receipt Date: 20161108
  Transmission Date: 20170207
  Serious: Yes (Other)
  Sender: FDA-Public Use
  Company Number: US-DSJP-DSU-2016-137066

PATIENT

DRUGS (1)
  1. OLMESARTAN MEDOXOMIL. [Suspect]
     Active Substance: OLMESARTAN MEDOXOMIL
     Indication: HYPERTENSION

REACTIONS (5)
  - Malabsorption [Recovered/Resolved]
  - Blood creatinine increased [Unknown]
  - Presyncope [Unknown]
  - Large intestinal ulcer [Unknown]
  - Colitis ischaemic [Recovered/Resolved]
